APPROVED DRUG PRODUCT: ISOCAINE HYDROCHLORIDE W/ LEVONORDEFRIN
Active Ingredient: LEVONORDEFRIN; MEPIVACAINE HYDROCHLORIDE
Strength: 0.05MG/ML;2%
Dosage Form/Route: INJECTABLE;INJECTION
Application: A084697 | Product #001
Applicant: SEPTODONT INC
Approved: Approved Prior to Jan 1, 1982 | RLD: No | RS: No | Type: DISCN